FAERS Safety Report 5059825-4 (Version None)
Quarter: 2006Q3

REPORT INFORMATION
  Report Type: 
  Country: None (occurrence: None)
  Receive Date: 20060724
  Receipt Date: 20060711
  Transmission Date: 20061208
  Serious: Yes (Hospitalization)
  Sender: FDA-Public Use
  Company Number: US-JNJFOC-20060505145

PATIENT
  Age: 16 Year
  Sex: Female

DRUGS (6)
  1. RISPERDAL [Suspect]
     Indication: PSYCHOTIC DISORDER
     Route: 048
  2. RISPERDAL [Suspect]
     Indication: MAJOR DEPRESSION
     Route: 048
  3. GEODON [Suspect]
     Indication: PSYCHOTIC DISORDER
     Route: 048
  4. EFFEXOR [Concomitant]
     Indication: DEPRESSION
     Dosage: 37.5 MG AND INCREASED UP TO 150 MG
  5. LEXAPRO [Concomitant]
     Dosage: 15-20 MG
  6. LEXAPRO [Concomitant]
     Dosage: 20-30 MG

REACTIONS (1)
  - PITUITARY TUMOUR BENIGN [None]
